FAERS Safety Report 15889013 (Version 1)
Quarter: 2019Q1

REPORT INFORMATION
  Report Type: Spontaneous
  Country: US (occurrence: US)
  Receive Date: 20190130
  Receipt Date: 20190130
  Transmission Date: 20190417
  Serious: Yes (Other)
  Sender: FDA-Public Use
  Company Number: US-PFIZER INC-2018440421

PATIENT
  Age: 10 Year
  Sex: Male

DRUGS (2)
  1. GENOTROPIN [Suspect]
     Active Substance: SOMATROPIN
     Dosage: 1.3 MG, DAILY
  2. GENOTROPIN [Suspect]
     Active Substance: SOMATROPIN
     Dosage: ALTERNATING DOSES OF 1.2MG AND 1.4MG, 7 DAYS A WEEK

REACTIONS (5)
  - Hypoglycaemia [Unknown]
  - Fall [Unknown]
  - Urinary tract infection pseudomonal [Unknown]
  - Seizure like phenomena [Unknown]
  - Product prescribing error [Unknown]
